FAERS Safety Report 7080370-9 (Version None)
Quarter: 2010Q4

REPORT INFORMATION
  Report Type: 
  Country: None (occurrence: None)
  Receive Date: 20101103
  Receipt Date: 20101026
  Transmission Date: 20110411
  Serious: Yes (Other)
  Sender: FDA-Public Use
  Company Number: US-SHIRE-SPV1-2010-01847

PATIENT
  Age: 66 Year
  Sex: Female
  Weight: 72.562 kg

DRUGS (13)
  1. ADDERALL XR 10 [Suspect]
     Indication: PRODUCT USED FOR UNKNOWN INDICATION
     Dosage: UNK, UNKNOWN
     Route: 065
     Dates: end: 20100101
  2. GEODON [Suspect]
     Indication: BIPOLAR DISORDER
     Dosage: 80 MG, 1X/DAY:QD (AT BEDTIME)
     Route: 048
     Dates: end: 20100101
  3. GEODON [Suspect]
     Indication: PSYCHOTIC DISORDER
     Dosage: 40 MG, UNKNOWN
     Route: 048
     Dates: start: 20100101, end: 20100729
  4. GEODON [Suspect]
     Indication: OBSESSIVE-COMPULSIVE DISORDER
  5. LITHIUM CARBONATE [Suspect]
     Indication: PRODUCT USED FOR UNKNOWN INDICATION
     Dosage: 600 UNK, UNKNOWN
     Route: 065
     Dates: end: 20100101
  6. LITHIUM CARBONATE [Suspect]
     Dosage: UNK, UNKNOWN
     Route: 065
     Dates: start: 20100101
  7. LAMICTAL [Concomitant]
     Indication: PRODUCT USED FOR UNKNOWN INDICATION
     Dosage: 100 UNK, UNKNOWN
     Route: 065
  8. GLIMEPIRIDE [Concomitant]
     Indication: PRODUCT USED FOR UNKNOWN INDICATION
     Dosage: UNK, UNKNOWN
     Route: 065
  9. LEVOTHYROXINE SODIUM [Concomitant]
     Indication: PRODUCT USED FOR UNKNOWN INDICATION
     Dosage: UNK, UNKNOWN
     Route: 065
  10. CRESTOR [Concomitant]
     Indication: PRODUCT USED FOR UNKNOWN INDICATION
     Dosage: UNK, UNKNOWN
     Route: 065
  11. METFORMIN [Concomitant]
     Indication: PRODUCT USED FOR UNKNOWN INDICATION
     Dosage: UNK, UNKNOWN
     Route: 065
  12. VITAMIN E                          /00110501/ [Concomitant]
     Indication: PRODUCT USED FOR UNKNOWN INDICATION
     Dosage: 400 IU, 4X/DAY:QID
     Route: 065
  13. EFFEXOR [Concomitant]
     Indication: PRODUCT USED FOR UNKNOWN INDICATION
     Dosage: 150 UNK, UNKNOWN
     Route: 065

REACTIONS (2)
  - GLOSSODYNIA [None]
  - TARDIVE DYSKINESIA [None]
